FAERS Safety Report 4642364-X (Version None)
Quarter: 2005Q2

REPORT INFORMATION
  Report Type: 
  Country: None (occurrence: None)
  Receive Date: 20050420
  Receipt Date: 20050406
  Transmission Date: 20051028
  Serious: Yes (Hospitalization)
  Sender: FDA-Public Use
  Company Number: 8010012

PATIENT
  Sex: Female

DRUGS (4)
  1. KEPPRA [Suspect]
     Indication: TEMPORAL LOBE EPILEPSY
     Dosage: 3000 MG PO
     Route: 048
     Dates: start: 20030101
  2. KEPPRA [Suspect]
     Indication: TEMPORAL LOBE EPILEPSY
     Dosage: PO
     Route: 048
  3. KEPPRA [Suspect]
     Indication: TEMPORAL LOBE EPILEPSY
     Dosage: 3000 MG PO
     Route: 048
     Dates: start: 20040101
  4. TOPIRAMATE [Concomitant]

REACTIONS (2)
  - CONVERSION DISORDER [None]
  - CONVULSION [None]
